FAERS Safety Report 6923180-2 (Version None)
Quarter: 2010Q3

REPORT INFORMATION
  Report Type: 
  Country: None (occurrence: None)
  Receive Date: 20100813
  Receipt Date: 20100803
  Transmission Date: 20110219
  Serious: Yes (Hospitalization)
  Sender: FDA-Public Use
  Company Number: TH-ROCHE-708730

PATIENT
  Age: 38 Year
  Sex: Female
  Weight: 49 kg

DRUGS (3)
  1. OSELTAMIVIR [Suspect]
     Dosage: DOSE BLINDED.
     Route: 048
     Dates: start: 20100111, end: 20100430
  2. ACETYLCYSTEINE [Concomitant]
     Indication: COUGH
     Route: 048
     Dates: start: 20100106, end: 20100112
  3. BROMHEXINE HYDROCHLORIDE [Concomitant]
     Indication: COUGH
     Route: 048
     Dates: start: 20100106, end: 20100112

REACTIONS (3)
  - BLIGHTED OVUM [None]
  - DRUG EXPOSURE DURING PREGNANCY [None]
  - PREGNANCY [None]
